FAERS Safety Report 5044340-4 (Version None)
Quarter: 2006Q3

REPORT INFORMATION
  Report Type: 
  Country: None (occurrence: None)
  Receive Date: 20060706
  Receipt Date: 20060621
  Transmission Date: 20061208
  Serious: Yes (Life-Threatening, Hospitalization, Other)
  Sender: FDA-Public Use
  Company Number: 2006AP02867

PATIENT
  Age: 23017 Day
  Sex: Female

DRUGS (5)
  1. ARIMIDEX [Suspect]
     Indication: BREAST CANCER
     Route: 048
     Dates: start: 20050615
  2. TAVOR [Concomitant]
  3. CALCIUM SUPPLEMENTATION [Concomitant]
  4. TORVAST [Concomitant]
  5. ASPIRIN [Concomitant]

REACTIONS (1)
  - CAROTID ARTERY STENOSIS [None]
